FAERS Safety Report 23905591 (Version 1)
Quarter: 2024Q2

REPORT INFORMATION
  Report Type: Spontaneous
  Country: IT (occurrence: IT)
  Receive Date: 20240527
  Receipt Date: 20240527
  Transmission Date: 20240715
  Serious: Yes (Hospitalization)
  Sender: FDA-Public Use
  Company Number: IT-SA-2024SA155416

PATIENT
  Sex: Female

DRUGS (2)
  1. ZOLPIDEM TARTRATE [Suspect]
     Active Substance: ZOLPIDEM TARTRATE
     Dosage: UNK
  2. SERTRALINE [Concomitant]
     Active Substance: SERTRALINE HYDROCHLORIDE
     Dosage: UNK

REACTIONS (3)
  - Head injury [Unknown]
  - Fall [Unknown]
  - Product use issue [Unknown]
